FAERS Safety Report 4384986-X (Version None)
Quarter: 2004Q2

REPORT INFORMATION
  Report Type: 
  Country: None (occurrence: None)
  Receive Date: 20040625
  Receipt Date: 20040217
  Transmission Date: 20050107
  Serious: Yes (Hospitalization)
  Sender: FDA-Public Use
  Company Number: US-BRISTOL-MYERS SQUIBB COMPANY-12510061

PATIENT
  Age: 61 Year
  Sex: Male
  Weight: 73 kg

DRUGS (10)
  1. COUMADIN [Suspect]
     Indication: PULMONARY EMBOLISM
     Dosage: 01/97: 2 MG X 4 WKS S/P DISCHARGE; 05/97:4 MG X ^YEARS^;02/03:6 MG;4MG,1 QD ^FOR AWHILE^
     Route: 048
     Dates: start: 19970101
  2. COUMADIN [Suspect]
     Indication: DEEP VEIN THROMBOSIS
     Dosage: 01/97: 2 MG X 4 WKS S/P DISCHARGE; 05/97:4 MG X ^YEARS^;02/03:6 MG;4MG,1 QD ^FOR AWHILE^
     Route: 048
     Dates: start: 19970101
  3. PLAVIX [Concomitant]
  4. ASPIRIN [Concomitant]
  5. TOPROL-XL [Concomitant]
  6. FOLATE [Concomitant]
  7. CRESTOR [Concomitant]
  8. GLUCOSAMINE SULFATE + MSM [Concomitant]
  9. CHONDROITIN + GLUCOSAMINE [Concomitant]
  10. MULTI-VITAMIN [Concomitant]

REACTIONS (7)
  - ATRIAL FIBRILLATION [None]
  - CHEST PAIN [None]
  - COAGULATION FACTOR VIII LEVEL DECREASED [None]
  - CORONARY ARTERY OCCLUSION [None]
  - INTERNATIONAL NORMALISED RATIO DECREASED [None]
  - MYOCARDIAL INFARCTION [None]
  - PETECHIAE [None]
